FAERS Safety Report 24298771 (Version 3)
Quarter: 2024Q4

REPORT INFORMATION
  Report Type: Spontaneous
  Country: US (occurrence: US)
  Receive Date: 20240909
  Receipt Date: 20241114
  Transmission Date: 20250115
  Serious: No
  Sender: CSL BEHRING
  Company Number: US-BEH-2024178368

PATIENT
  Age: 55 Year
  Sex: Male
  Weight: 71.202 kg

DRUGS (10)
  1. HIZENTRA [Suspect]
     Active Substance: HUMAN IMMUNOGLOBULIN G
     Indication: Chronic inflammatory demyelinating polyradiculoneuropathy
     Dosage: 13 G, QW
     Route: 058
     Dates: start: 20210815
  2. HIZENTRA [Suspect]
     Active Substance: HUMAN IMMUNOGLOBULIN G
     Dosage: 10G
     Route: 058
     Dates: start: 20240828
  3. HIZENTRA [Suspect]
     Active Substance: HUMAN IMMUNOGLOBULIN G
     Dosage: 2 G
     Route: 058
     Dates: start: 20240828
  4. HIZENTRA [Suspect]
     Active Substance: HUMAN IMMUNOGLOBULIN G
     Dosage: 1 G
     Route: 058
     Dates: start: 20240828
  5. BIKTARVY [Concomitant]
     Active Substance: BICTEGRAVIR SODIUM\EMTRICITABINE\TENOFOVIR ALAFENAMIDE FUMARATE
     Indication: HIV infection
  6. ROSUVASTATIN [Concomitant]
     Active Substance: ROSUVASTATIN
  7. CITALOPRAM [Concomitant]
     Active Substance: CITALOPRAM
  8. LORATADINE [Concomitant]
     Active Substance: LORATADINE
  9. LISINOPRIL [Concomitant]
     Active Substance: LISINOPRIL
  10. MELATONIN [Concomitant]
     Active Substance: MELATONIN

REACTIONS (2)
  - Hepatitis B surface antibody positive [Not Recovered/Not Resolved]
  - Misleading laboratory test result [Not Recovered/Not Resolved]

NARRATIVE: CASE EVENT DATE: 20240731
